FAERS Safety Report 7505795 (Version 2)
Quarter: 2013Q3

REPORT INFORMATION
  Report Type: Spontaneous
  Country: US (occurrence: US)
  Receive Date: 20100728
  Receipt Date: 20130823
  Transmission Date: 20140515
  Serious: No
  Sender: FDA-Public Use
  Company Number: US-BRISTOL-MYERS SQUIBB COMPANY-15003056

PATIENT
  Age: 75 Year
  Sex: Female
  Weight: 73.92 kg

DRUGS (2)
  1. SPRYCEL (CML) TABS 50 MG [Suspect]
     Indication: CHRONIC MYELOID LEUKAEMIA
     Dosage: 2DF- 2 TABS HS
     Route: 048
     Dates: start: 20100228
  2. ZOCOR [Concomitant]

REACTIONS (3)
  - Eye pain [Unknown]
  - Dry eye [Unknown]
  - Dizziness [Unknown]
